FAERS Safety Report 7479744-3 (Version None)
Quarter: 2011Q2

REPORT INFORMATION
  Report Type: 
  Country: None (occurrence: None)
  Receive Date: 20110513
  Receipt Date: 20110506
  Transmission Date: 20111010
  Serious: Yes (Other)
  Sender: FDA-Public Use
  Company Number: GB-GILEAD-2011-0037354

PATIENT
  Sex: Female
  Weight: 1.51 kg

DRUGS (5)
  1. REYATAZ [Concomitant]
     Route: 064
     Dates: end: 20110114
  2. NORVIR [Concomitant]
     Route: 064
  3. ISENTRESS [Concomitant]
     Route: 064
  4. VIREAD [Suspect]
     Indication: HIV INFECTION
     Route: 064
     Dates: end: 20110114
  5. EPZICOM [Concomitant]
     Route: 064

REACTIONS (2)
  - PLACENTAL INSUFFICIENCY [None]
  - SMALL FOR DATES BABY [None]
